FAERS Safety Report 15250968 (Version 2)
Quarter: 2018Q3

REPORT INFORMATION
  Report Type: Spontaneous
  Country: FR (occurrence: FR)
  Receive Date: 20180807
  Receipt Date: 20180829
  Transmission Date: 20181010
  Serious: Yes (Other)
  Sender: FDA-Public Use
  Company Number: PHHY2018FR064947

PATIENT
  Sex: Female

DRUGS (1)
  1. AZARGA [Suspect]
     Active Substance: BRINZOLAMIDE\TIMOLOL MALEATE
     Indication: GLAUCOMA
     Route: 047

REACTIONS (1)
  - Platelet count decreased [Unknown]

NARRATIVE: CASE EVENT DATE: 20180727
